FAERS Safety Report 5273880-8 (Version None)
Quarter: 2007Q1

REPORT INFORMATION
  Report Type: 
  Country: None (occurrence: None)
  Receive Date: 20070323
  Receipt Date: 20070315
  Transmission Date: 20070707
  Serious: Yes (Death, Other)
  Sender: FDA-Public Use
  Company Number: BR-ABBOTT-07P-020-0362073-00

PATIENT
  Sex: Female
  Weight: 70 kg

DRUGS (2)
  1. HUMIRA [Suspect]
     Indication: RHEUMATOID ARTHRITIS
     Route: 058
     Dates: start: 20040101
  2. CAPTOPRIL [Concomitant]
     Indication: HYPERTENSION
     Route: 048
     Dates: start: 20060901

REACTIONS (2)
  - AORTIC ANEURYSM [None]
  - AORTIC DISSECTION [None]
